FAERS Safety Report 9697536 (Version 1)
Quarter: 2013Q4

REPORT INFORMATION
  Report Type: Spontaneous
  Country: US (occurrence: None)
  Receive Date: 20131119
  Receipt Date: 20131119
  Transmission Date: 20140711
  Serious: Yes (Other)
  Sender: FDA-Public Use
  Company Number: None

PATIENT
  Age: 80 Year
  Sex: Female

DRUGS (13)
  1. NITROFURANTOIN [Suspect]
     Indication: URINARY TRACT INFECTION
     Dosage: 100 MG 14 TWICE DAILY ORAL
     Route: 048
     Dates: start: 20131107, end: 20131109
  2. NITROFURANTOIN [Suspect]
     Indication: OVARIAN CANCER
     Dosage: 100 MG 14 TWICE DAILY ORAL
     Route: 048
     Dates: start: 20131107, end: 20131109
  3. LEVOTHYROXINE [Concomitant]
  4. PANTOPRAZOLE [Concomitant]
  5. LORAZEPAM [Concomitant]
  6. VANCOMYCIN HCL [Concomitant]
  7. METOPROLOL [Concomitant]
  8. FLUOXETINE HCL [Concomitant]
  9. PRO-BIOTICS [Concomitant]
  10. VITAMIN B COMPLEX [Concomitant]
  11. ASPIRIN 81 MG [Concomitant]
  12. ACETAMINOPHEN 650 MG [Concomitant]
  13. DIPHENHYDRAMINE HIC 25 MG [Concomitant]

REACTIONS (3)
  - Rash generalised [None]
  - Body temperature increased [None]
  - Chills [None]
